FAERS Safety Report 21781827 (Version 4)
Quarter: 2024Q4

REPORT INFORMATION
  Report Type: Spontaneous
  Country: CA (occurrence: CA)
  Receive Date: 20221227
  Receipt Date: 20241113
  Transmission Date: 20250115
  Serious: Yes (Other)
  Sender: ROCHE
  Company Number: CA-ROCHE-3250735

PATIENT
  Age: 65 Year
  Sex: Female

DRUGS (15)
  1. RITUXIMAB [Suspect]
     Active Substance: RITUXIMAB
     Indication: Rheumatoid arthritis
     Route: 042
  2. ACETAMINOPHEN [Concomitant]
     Active Substance: ACETAMINOPHEN
     Route: 048
  3. DIPHENHYDRAMINE [Concomitant]
     Active Substance: DIPHENHYDRAMINE
     Route: 048
  4. METHYLPREDNISOLONE [Concomitant]
     Active Substance: METHYLPREDNISOLONE
     Route: 042
  5. AZITHROMYCIN [Concomitant]
     Active Substance: AZITHROMYCIN
  6. BUPROPION [Concomitant]
     Active Substance: BUPROPION
  7. ERGOCALCIFEROL [Concomitant]
     Active Substance: ERGOCALCIFEROL
  8. FOLIC ACID [Concomitant]
     Active Substance: FOLIC ACID
  9. MAGNESIUM CARBONATE [Concomitant]
     Active Substance: MAGNESIUM CARBONATE
     Route: 042
  10. NYSTATIN [Concomitant]
     Active Substance: NYSTATIN
  11. OXYBUTYNIN [Concomitant]
     Active Substance: OXYBUTYNIN
  12. VYVANSE [Concomitant]
     Active Substance: LISDEXAMFETAMINE DIMESYLATE
  13. RIBOFLAVIN PHOSPHATE [Concomitant]
     Active Substance: FLAVIN MONONUCLEOTIDE
     Route: 065
  14. TRAMADOL HYDROCHLORIDE [Concomitant]
     Active Substance: TRAMADOL HYDROCHLORIDE
     Route: 065
  15. VALACYCLOVIR HYDROCHLORIDE [Concomitant]
     Active Substance: VALACYCLOVIR HYDROCHLORIDE
     Route: 065

REACTIONS (2)
  - Malaise [Not Recovered/Not Resolved]
  - Pneumonia [Not Recovered/Not Resolved]
